FAERS Safety Report 20834544 (Version 2)
Quarter: 2022Q2

REPORT INFORMATION
  Report Type: Report from Study
  Country: FR (occurrence: FR)
  Receive Date: 20220516
  Receipt Date: 20220519
  Transmission Date: 20220721
  Serious: Yes (Hospitalization, Other)
  Sender: FDA-Public Use
  Company Number: FR-NOVARTISPH-NVSC2020FR259845

PATIENT
  Sex: Male
  Weight: 108 kg

DRUGS (3)
  1. DABRAFENIB [Suspect]
     Active Substance: DABRAFENIB
     Indication: Metastatic malignant melanoma
     Dosage: 300 MG
     Route: 048
     Dates: start: 20200806, end: 20220106
  2. TRAMETINIB [Suspect]
     Active Substance: TRAMETINIB
     Indication: Metastatic malignant melanoma
     Dosage: 2 MG
     Route: 048
     Dates: start: 20200806, end: 20220106
  3. PEMBROLIZUMAB [Concomitant]
     Active Substance: PEMBROLIZUMAB
     Indication: Product used for unknown indication
     Dosage: UNK
     Route: 065

REACTIONS (12)
  - General physical condition abnormal [Recovered/Resolved]
  - Anaemia [Unknown]
  - Hypokalaemia [Unknown]
  - Respiratory distress [Recovered/Resolved with Sequelae]
  - Fall [Unknown]
  - Diarrhoea [Unknown]
  - Vomiting [Unknown]
  - Back pain [Recovered/Resolved with Sequelae]
  - Head injury [Recovered/Resolved]
  - Myalgia [Recovered/Resolved with Sequelae]
  - Oedema peripheral [Recovered/Resolved with Sequelae]
  - Injection site rash [Recovered/Resolved with Sequelae]

NARRATIVE: CASE EVENT DATE: 20200901
